FAERS Safety Report 9621886 (Version 2)
Quarter: 2013Q4

REPORT INFORMATION
  Report Type: Spontaneous
  Country: IT (occurrence: IT)
  Receive Date: 20131015
  Receipt Date: 20131220
  Transmission Date: 20140711
  Serious: Yes (Other)
  Sender: FDA-Public Use
  Company Number: IT-ASTRAZENECA-2013SE74536

PATIENT
  Age: 43 Year
  Sex: Female
  Weight: 75 kg

DRUGS (10)
  1. OMEPRAZOLE [Suspect]
     Route: 048
     Dates: start: 20130915, end: 20130915
  2. CLARITHROMYCIN [Suspect]
     Route: 048
     Dates: start: 20130915, end: 20130915
  3. VALIUM [Suspect]
     Route: 048
     Dates: start: 20130915, end: 20130915
  4. NORMIX [Suspect]
     Route: 048
     Dates: start: 20130915, end: 20130915
  5. AMBROMUCIL [Suspect]
     Route: 048
     Dates: start: 20130915, end: 20130915
  6. NOVALGINA [Suspect]
     Route: 048
     Dates: start: 20130915, end: 20130915
  7. ZYLORIC [Suspect]
     Route: 048
     Dates: start: 20130915, end: 20130915
  8. HALDOL [Suspect]
     Indication: PRODUCT USED FOR UNKNOWN INDICATION
     Route: 048
     Dates: start: 20120915, end: 20130915
  9. IMPROMEN [Suspect]
     Route: 048
     Dates: start: 20130915, end: 20130915
  10. DISIPAL [Suspect]
     Route: 048
     Dates: start: 20130915, end: 20130915

REACTIONS (4)
  - Intentional self-injury [Unknown]
  - Drug abuse [Unknown]
  - Confusional state [Unknown]
  - Psychomotor skills impaired [Unknown]
